FAERS Safety Report 14976537 (Version 1)
Quarter: 2018Q2

REPORT INFORMATION
  Report Type: Spontaneous
  Country: US (occurrence: US)
  Receive Date: 20180605
  Receipt Date: 20180605
  Transmission Date: 20180711
  Serious: Yes (Hospitalization, Other)
  Sender: FDA-Public Use
  Company Number: US-JNJFOC-20180538418

PATIENT

DRUGS (1)
  1. DARZALEX [Suspect]
     Active Substance: DARATUMUMAB
     Indication: PRODUCT USED FOR UNKNOWN INDICATION
     Route: 042

REACTIONS (6)
  - Pulmonary toxicity [Unknown]
  - Hospitalisation [Unknown]
  - Respiratory disorder [Unknown]
  - Dependence on oxygen therapy [Unknown]
  - Cough [Unknown]
  - Pneumonia [Unknown]
